FAERS Safety Report 8623262 (Version 4)
Quarter: 2013Q1

REPORT INFORMATION
  Report Type: Spontaneous
  Country: CA (occurrence: CA)
  Receive Date: 20120620
  Receipt Date: 20130107
  Transmission Date: 20140127
  Serious: Yes (Hospitalization, Other)
  Sender: FDA-Public Use
  Company Number: PHHY2012CA051394

PATIENT
  Sex: Male

DRUGS (2)
  1. ZOMETA [Suspect]
     Indication: LUNG NEOPLASM MALIGNANT
     Dosage: 4 MG, EVERY 4 WEEKS
     Route: 042
     Dates: start: 20120608
  2. ZOMETA [Suspect]
     Dosage: 4 MG, EVERY 4 WEEKS
     Route: 042
     Dates: end: 20121129

REACTIONS (9)
  - Blood glucose abnormal [Recovering/Resolving]
  - Acidosis [Unknown]
  - Dehydration [Unknown]
  - Dyspnoea [Unknown]
  - Somnolence [Unknown]
  - Dizziness [Unknown]
  - Decreased appetite [Unknown]
  - Ageusia [Unknown]
  - Asthenia [Unknown]
